FAERS Safety Report 8238880-4 (Version None)
Quarter: 2012Q1

REPORT INFORMATION
  Report Type: 
  Country: None (occurrence: None)
  Receive Date: 20120327
  Receipt Date: 20120320
  Transmission Date: 20120608
  Serious: Yes (Other)
  Sender: FDA-Public Use
  Company Number: GB-PFIZER INC-2012073163

PATIENT
  Age: 80 Year
  Sex: Female

DRUGS (8)
  1. ASPIRIN [Concomitant]
  2. MORPHINE [Concomitant]
  3. TOLTERODINE [Concomitant]
  4. EFFEXOR [Suspect]
     Dosage: 75 MG, 2X/DAY
  5. PRAMIPEXOLE [Concomitant]
  6. PARACETAMOL [Concomitant]
  7. BENDROFLUMETHIAZIDE [Concomitant]
  8. LANSOPRAZOLE [Concomitant]

REACTIONS (4)
  - DIZZINESS [None]
  - CONFUSIONAL STATE [None]
  - DRUG DOSE OMISSION [None]
  - DISORIENTATION [None]
